FAERS Safety Report 13303993 (Version 1)
Quarter: 2017Q1

REPORT INFORMATION
  Report Type: Spontaneous
  Country: CN (occurrence: CN)
  Receive Date: 20170307
  Receipt Date: 20170307
  Transmission Date: 20170428
  Serious: Yes (Life-Threatening)
  Sender: FDA-Public Use
  Company Number: CN-ROCHE-1902068

PATIENT
  Age: 55 Year
  Sex: Male
  Weight: 55 kg

DRUGS (2)
  1. XELODA [Suspect]
     Active Substance: CAPECITABINE
     Indication: RECTAL CANCER
     Route: 048
     Dates: start: 20161102, end: 20161102
  2. GLUTATHIONE [Suspect]
     Active Substance: GLUTATHIONE
     Indication: RECTAL CANCER
     Route: 041
     Dates: start: 20161102, end: 20161102

REACTIONS (1)
  - Pharyngeal oedema [Recovering/Resolving]

NARRATIVE: CASE EVENT DATE: 20161102
